FAERS Safety Report 6155267-9 (Version None)
Quarter: 2009Q2

REPORT INFORMATION
  Report Type: 
  Country: None (occurrence: None)
  Receive Date: 20090410
  Receipt Date: 20090410
  Transmission Date: 20091009
  Serious: No
  Sender: FDA-Public Use
  Company Number: None

PATIENT
  Age: 54 Year
  Sex: Female
  Weight: 53.978 kg

DRUGS (1)
  1. LARIAM [Suspect]
     Indication: MALARIA PROPHYLAXIS
     Dosage: 250 MG ONCE A WEEK PO
     Route: 048
     Dates: start: 20081120, end: 20081218

REACTIONS (7)
  - ANXIETY [None]
  - DIARRHOEA [None]
  - DIZZINESS [None]
  - PYREXIA [None]
  - SKIN BURNING SENSATION [None]
  - TINNITUS [None]
  - TREMOR [None]
